FAERS Safety Report 15328975 (Version 1)
Quarter: 2018Q3

REPORT INFORMATION
  Report Type: Spontaneous
  Country: PL (occurrence: PL)
  Receive Date: 20180829
  Receipt Date: 20180829
  Transmission Date: 20181010
  Serious: Yes (Death, Other)
  Sender: FDA-Public Use
  Company Number: PL-AXELLIA-001911

PATIENT
  Age: 59 Year
  Sex: Female

DRUGS (3)
  1. VORICONAZOLE. [Suspect]
     Active Substance: VORICONAZOLE
     Indication: BACTERIAL INFECTION
     Route: 042
  2. AMIODARONE [Suspect]
     Active Substance: AMIODARONE
     Indication: PRODUCT USED FOR UNKNOWN INDICATION
     Dosage: UNK
     Dates: start: 201712
  3. LINEZOLID. [Suspect]
     Active Substance: LINEZOLID
     Indication: BACTERIAL INFECTION
     Dosage: UNK

REACTIONS (9)
  - Atrial fibrillation [Unknown]
  - Stevens-Johnson syndrome [Fatal]
  - Disorientation [Unknown]
  - Aggression [Unknown]
  - C-reactive protein increased [Unknown]
  - Abdominal pain [Recovering/Resolving]
  - Blood pressure decreased [Unknown]
  - Confusional state [Unknown]
  - Procalcitonin increased [Unknown]

NARRATIVE: CASE EVENT DATE: 2017
